FAERS Safety Report 23130040 (Version 1)
Quarter: 2023Q4

REPORT INFORMATION
  Report Type: Report from Study
  Country: CN (occurrence: CN)
  Receive Date: 20231031
  Receipt Date: 20231031
  Transmission Date: 20240110
  Serious: Yes (Hospitalization, Other)
  Sender: FDA-Public Use
  Company Number: CN-SA-2023SA331341

PATIENT

DRUGS (3)
  1. OXALIPLATIN [Suspect]
     Active Substance: OXALIPLATIN
     Indication: Rectal cancer
     Dosage: 50 MG, QCY, DAY 1
     Route: 042
  2. SINTILIMAB [Suspect]
     Active Substance: SINTILIMAB
     Indication: Rectal cancer
     Dosage: 200 MG, QCY
     Route: 042
  3. CAPECITABINE [Suspect]
     Active Substance: CAPECITABINE
     Indication: Rectal cancer
     Dosage: 1000 MG/M2, BID, QCY
     Route: 048

REACTIONS (2)
  - Dermatitis [Unknown]
  - Abdominal pain [Unknown]
